FAERS Safety Report 9921452 (Version 1)
Quarter: 2014Q1

REPORT INFORMATION
  Report Type: Spontaneous
  Country: US (occurrence: None)
  Receive Date: 20140221
  Receipt Date: 20140221
  Transmission Date: 20141002
  Serious: Yes (Other)
  Sender: FDA-Public Use
  Company Number: None

PATIENT
  Age: 71 Year
  Sex: Male
  Weight: 97.2 kg

DRUGS (13)
  1. VANDETANIB [Suspect]
     Indication: GLIOBLASTOMA
     Dates: start: 20101110, end: 20101220
  2. SIROLIMUS [Suspect]
     Dates: start: 20101110, end: 20101220
  3. LOVASTATIN [Concomitant]
  4. LISINOPRIL [Concomitant]
  5. OMEPRAZOLE [Concomitant]
  6. BACTRIM [Concomitant]
  7. BAYER ASPIRIN [Concomitant]
  8. MELATONIN [Concomitant]
  9. METOPROLOL [Concomitant]
  10. NORVASC [Concomitant]
  11. LOPID [Concomitant]
  12. GEMFIBROZIL [Concomitant]
  13. MINOCYCLINE [Concomitant]

REACTIONS (5)
  - Rectal haemorrhage [None]
  - Abdominal pain [None]
  - Diverticulitis [None]
  - Colitis [None]
  - Haemorrhoids [None]
